FAERS Safety Report 6358554-4 (Version None)
Quarter: 2009Q3

REPORT INFORMATION
  Report Type: 
  Country: None (occurrence: None)
  Receive Date: 20090916
  Receipt Date: 20090831
  Transmission Date: 20100115
  Serious: Yes (Death, Other)
  Sender: FDA-Public Use
  Company Number: GB-GENENTECH-290452

PATIENT

DRUGS (12)
  1. RITUXAN [Suspect]
     Indication: EPSTEIN-BARR VIRUS INFECTION
     Route: 065
  2. DACLIXIMAB [Suspect]
     Indication: GRAFT VERSUS HOST DISEASE
     Dosage: 1 MG/KG, UNK
     Route: 042
  3. MYCOPHENOLATE MOFETIL [Suspect]
     Indication: PROPHYLAXIS AGAINST TRANSPLANT REJECTION
     Route: 065
  4. SULFAMETHOXAZOLE AND TRIMETHOPRIM [Suspect]
     Indication: INFECTION PROPHYLAXIS
     Route: 065
  5. GANCICLOVIR [Suspect]
     Indication: CYTOMEGALOVIRUS INFECTION
     Route: 065
  6. RIBAVIRIN [Suspect]
     Indication: ADENOVIRUS INFECTION
     Route: 042
  7. ITRACONAZOLE [Suspect]
     Indication: INFECTION PROPHYLAXIS
     Dosage: 5 MG/KG, UNK
     Route: 065
  8. INFLIXIMAB [Suspect]
     Indication: GRAFT VERSUS HOST DISEASE
     Dosage: 10 MG/KG, UNK
     Route: 042
  9. ACYCLOVIR [Suspect]
     Indication: INFECTION PROPHYLAXIS
     Dosage: 750 MG/M2, UNK
     Route: 048
  10. PENICILLIN V [Suspect]
     Indication: INFECTION PROPHYLAXIS
     Dosage: 250 MG, UNK
     Route: 065
  11. CYCLOSPORINE [Suspect]
     Indication: PROPHYLAXIS AGAINST TRANSPLANT REJECTION
     Route: 065
  12. METHYLPREDNISOLONE [Suspect]
     Indication: PROPHYLAXIS AGAINST TRANSPLANT REJECTION
     Dosage: 2 MG/KG, UNK
     Route: 065

REACTIONS (12)
  - ACUTE LYMPHOCYTIC LEUKAEMIA [None]
  - ASPERGILLOSIS [None]
  - CYTOMEGALOVIRUS INFECTION [None]
  - EPSTEIN-BARR VIRUS INFECTION [None]
  - GASTROINTESTINAL HAEMORRHAGE [None]
  - GRAFT VERSUS HOST DISEASE [None]
  - OBLITERATIVE BRONCHIOLITIS [None]
  - PANCYTOPENIA [None]
  - PSEUDOMONAL SEPSIS [None]
  - RESPIRATORY TRACT INFECTION FUNGAL [None]
  - THROMBOTIC THROMBOCYTOPENIC PURPURA [None]
  - VIRAL INFECTION [None]
